FAERS Safety Report 5403796-5 (Version None)
Quarter: 2007Q3

REPORT INFORMATION
  Report Type: 
  Country: None (occurrence: None)
  Receive Date: 20070731
  Receipt Date: 20070731
  Transmission Date: 20080115
  Serious: Yes (Other)
  Sender: FDA-Public Use
  Company Number: None

PATIENT
  Sex: Male

DRUGS (4)
  1. CIPRO [Suspect]
     Indication: EAR INFECTION
     Dosage: 500MG PO BID
     Route: 048
     Dates: start: 20070713
  2. CALCITRIOL [Concomitant]
  3. DOCUSATE [Concomitant]
  4. CLINDAMYCIN HCL [Concomitant]

REACTIONS (1)
  - RASH [None]
